FAERS Safety Report 17366479 (Version 2)
Quarter: 2020Q1

REPORT INFORMATION
  Report Type: Spontaneous
  Country: AR (occurrence: AR)
  Receive Date: 20200204
  Receipt Date: 20200211
  Transmission Date: 20200409
  Serious: Yes (Other)
  Sender: FDA-Public Use
  Company Number: AR-BRISTOL-MYERS SQUIBB COMPANY-BMS-2020-008822

PATIENT
  Age: 76 Year
  Sex: Male
  Weight: 52 kg

DRUGS (1)
  1. ELIQUIS [Suspect]
     Active Substance: APIXABAN
     Indication: CEREBROVASCULAR ACCIDENT PROPHYLAXIS
     Dosage: ONE PILL OF 5 MG AT MORNING AND HALF OF 5 MG AT NIGHT
     Route: 065

REACTIONS (4)
  - Prescribed underdose [Unknown]
  - Lithiasis [Unknown]
  - Haematuria [Unknown]
  - Underweight [Unknown]
